FAERS Safety Report 12171155 (Version 1)
Quarter: 2016Q1

REPORT INFORMATION
  Report Type: Spontaneous
  Country: US (occurrence: US)
  Receive Date: 20160311
  Receipt Date: 20160311
  Transmission Date: 20160526
  Serious: Yes (Hospitalization, Other)
  Sender: FDA-Public Use
  Company Number: PHHY2016US031196

PATIENT
  Age: 2 Year
  Sex: Female

DRUGS (5)
  1. PREDNISONE. [Suspect]
     Active Substance: PREDNISONE
     Indication: LANGERHANS^ CELL HISTIOCYTOSIS
     Route: 065
  2. METHOTREXATE [Suspect]
     Active Substance: METHOTREXATE
     Indication: LANGERHANS^ CELL HISTIOCYTOSIS
     Route: 065
  3. VINBLASTINE SULFATE. [Suspect]
     Active Substance: VINBLASTINE SULFATE
     Indication: LANGERHANS^ CELL HISTIOCYTOSIS
     Route: 065
  4. CLADRIBINE. [Concomitant]
     Active Substance: CLADRIBINE
     Indication: LIVER DISORDER
     Route: 065
  5. CLADRIBINE. [Concomitant]
     Active Substance: CLADRIBINE
     Indication: DISEASE PROGRESSION

REACTIONS (9)
  - Hypothyroidism [Unknown]
  - Treatment failure [Unknown]
  - Growth hormone deficiency [Unknown]
  - Pancytopenia [Unknown]
  - Cognitive disorder [Unknown]
  - Hepatosplenomegaly [Unknown]
  - Neutropenia [Unknown]
  - Pyrexia [Unknown]
  - Hypersplenism [Unknown]
